FAERS Safety Report 22061469 (Version 1)
Quarter: 2023Q1

REPORT INFORMATION
  Report Type: Report from Study
  Country: CO (occurrence: CO)
  Receive Date: 20230304
  Receipt Date: 20230304
  Transmission Date: 20230418
  Serious: Yes (Other)
  Sender: FDA-Public Use
  Company Number: CO-ABBVIE-4130223

PATIENT
  Sex: Female
  Weight: 41 kg

DRUGS (1)
  1. HUMIRA [Suspect]
     Active Substance: ADALIMUMAB
     Indication: Rheumatoid arthritis
     Route: 058
     Dates: start: 20180530, end: 20220822

REACTIONS (4)
  - Cataract [Recovered/Resolved]
  - Eye pain [Recovering/Resolving]
  - Tooth disorder [Recovering/Resolving]
  - Eye disorder [Recovered/Resolved]

NARRATIVE: CASE EVENT DATE: 20220101
